FAERS Safety Report 4559951-X (Version None)
Quarter: 2005Q1

REPORT INFORMATION
  Report Type: 
  Country: None (occurrence: None)
  Receive Date: 20050120
  Receipt Date: 20050120
  Transmission Date: 20050727
  Serious: Yes (Hospitalization)
  Sender: FDA-Public Use
  Company Number: None

PATIENT
  Age: 67 Year
  Sex: Male

DRUGS (4)
  1. GEMCITABINE [Suspect]
     Indication: LUNG NEOPLASM MALIGNANT
  2. APAP TAB [Concomitant]
  3. FERROUS GLUCONATE [Concomitant]
  4. WARFARIN SODIUM [Concomitant]

REACTIONS (3)
  - DIZZINESS [None]
  - DYSPNOEA [None]
  - WHEEZING [None]
